FAERS Safety Report 8815491 (Version 2)
Quarter: 2013Q3

REPORT INFORMATION
  Report Type: Spontaneous
  Country: FR (occurrence: FR)
  Receive Date: 20120928
  Receipt Date: 20130702
  Transmission Date: 20140515
  Serious: Yes (Hospitalization)
  Sender: FDA-Public Use
  Company Number: FR-GLAXOSMITHKLINE-B0831453A

PATIENT
  Age: 50 Year
  Sex: Female

DRUGS (15)
  1. AZANTAC [Suspect]
     Indication: PRODUCT USED FOR UNKNOWN INDICATION
     Dosage: 600MG SINGLE DOSE
     Route: 048
     Dates: start: 20120607, end: 20120607
  2. SEVORANE [Suspect]
     Indication: ANAESTHESIA
     Route: 065
     Dates: start: 20120607, end: 20120607
  3. ATRACURIUM [Suspect]
     Indication: ANAESTHESIA
     Dosage: 40MG SINGLE DOSE
     Route: 042
     Dates: start: 20120607, end: 20120607
  4. PROPOFOL [Suspect]
     Indication: ANAESTHESIA
     Dosage: 200MG SINGLE DOSE
     Route: 042
     Dates: start: 20120607, end: 20120607
  5. MIDAZOLAM [Suspect]
     Indication: ANAESTHESIA
     Dosage: 1.5MG SINGLE DOSE
     Route: 042
     Dates: start: 20120607, end: 20120607
  6. SUFENTANYL [Suspect]
     Indication: ANAESTHESIA
     Route: 042
     Dates: start: 20120607, end: 20120607
  7. ATARAX [Suspect]
     Indication: PRODUCT USED FOR UNKNOWN INDICATION
     Route: 048
     Dates: start: 20120606, end: 20120607
  8. LYRICA [Concomitant]
  9. STILNOX [Concomitant]
  10. XANAX [Concomitant]
  11. FLOXYFRAL [Concomitant]
  12. GAVISCON [Concomitant]
  13. PARACETAMOL [Concomitant]
  14. ACUPAN [Concomitant]
  15. TRAMADOL [Concomitant]

REACTIONS (6)
  - Hyperthermia [Recovered/Resolved]
  - Hypotension [Recovered/Resolved]
  - Wheezing [Recovered/Resolved]
  - Cough [Recovered/Resolved]
  - Heart rate decreased [Recovered/Resolved]
  - Hypersensitivity [Recovered/Resolved]
